FAERS Safety Report 9158572 (Version 1)
Quarter: 2013Q1

REPORT INFORMATION
  Report Type: Report from Study
  Country: US (occurrence: US)
  Receive Date: 20130312
  Receipt Date: 20130312
  Transmission Date: 20140127
  Serious: Yes (Hospitalization)
  Sender: FDA-Public Use
  Company Number: US-ACTELION-A-US2013-79225

PATIENT
  Age: 63 Year
  Sex: Female

DRUGS (3)
  1. VENTAVIS [Suspect]
     Indication: PULMONARY ARTERIAL HYPERTENSION
     Dosage: UNK
     Route: 055
  2. COUMADIN [Concomitant]
  3. LOVENOX [Concomitant]

REACTIONS (11)
  - Pulmonary mass [Unknown]
  - International normalised ratio increased [Unknown]
  - Anaemia [Unknown]
  - Pulmonary thrombosis [Recovering/Resolving]
  - Transfusion [Unknown]
  - Thrombosis [Recovering/Resolving]
  - Vena cava filter insertion [Recovering/Resolving]
  - Gait disturbance [Recovering/Resolving]
  - Fluid overload [Recovering/Resolving]
  - Joint injury [Unknown]
  - Fall [Unknown]
